FAERS Safety Report 13959990 (Version 1)
Quarter: 2017Q3

REPORT INFORMATION
  Report Type: Spontaneous
  Country: CH (occurrence: US)
  Receive Date: 20170912
  Receipt Date: 20170912
  Transmission Date: 20171128
  Serious: Yes (Other)
  Sender: FDA-Public Use
  Company Number: CH-LPDUSPRD-20171231

PATIENT
  Age: 20 Year
  Sex: Female

DRUGS (4)
  1. LISPRO INSULIN [Concomitant]
     Active Substance: INSULIN LISPRO
     Dosage: 5-10 IU
     Route: 058
  2. LEVOTHYROXIN SODIUM [Concomitant]
     Active Substance: LEVOTHYROXINE SODIUM
     Dosage: 50 MCG,1 IN 1 D
     Route: 048
  3. FERINJECT [Suspect]
     Active Substance: FERRIC CARBOXYMALTOSE
     Dosage: 500 MG
     Route: 041
     Dates: start: 20170803, end: 20170803
  4. LANTUS [Concomitant]
     Dosage: 24 IU,1 IN 1 D
     Route: 058

REACTIONS (4)
  - Skin lesion [Recovered/Resolved]
  - Dermatitis allergic [Unknown]
  - Paraesthesia [Unknown]
  - Pain [Recovered/Resolved]

NARRATIVE: CASE EVENT DATE: 20170803
